FAERS Safety Report 4687861-6 (Version None)
Quarter: 2005Q2

REPORT INFORMATION
  Report Type: 
  Country: None (occurrence: None)
  Receive Date: 20050609
  Receipt Date: 20050609
  Transmission Date: 20051028
  Serious: Yes (Disabling)
  Sender: FDA-Public Use
  Company Number: None

PATIENT
  Sex: Male

DRUGS (10)
  1. VFEND [Suspect]
     Indication: MENINGITIS COCCIDIOIDES
     Dosage: 400MG  PO BID
     Route: 048
     Dates: start: 20040601, end: 20050201
  2. CLOBETASOL [Concomitant]
  3. MS CONTIN [Concomitant]
  4. FIORICET [Concomitant]
  5. PHENERGAN [Concomitant]
  6. MORPHINE SULFATE [Concomitant]
  7. KETOROLAC [Concomitant]
  8. GUAIFENESIN DM [Concomitant]
  9. MELOXICAM [Concomitant]
  10. FLUCONAZOLE [Concomitant]

REACTIONS (5)
  - DRUG INEFFECTIVE [None]
  - EXERCISE CAPACITY DECREASED [None]
  - FATIGUE [None]
  - MENINGITIS COCCIDIOIDES [None]
  - PERIPHERAL MOTOR NEUROPATHY [None]
